FAERS Safety Report 15413523 (Version 1)
Quarter: 2018Q3

REPORT INFORMATION
  Report Type: Spontaneous
  Country: US (occurrence: US)
  Receive Date: 20180921
  Receipt Date: 20180921
  Transmission Date: 20181010
  Serious: Yes (Other)
  Sender: FDA-Public Use
  Company Number: US-AEGERION PHARMACEUTICAL, INC-AEGR003984

PATIENT
  Age: 44 Year
  Sex: Female

DRUGS (2)
  1. INSULIN [Concomitant]
     Active Substance: INSULIN NOS
     Indication: DIABETES MELLITUS
  2. MYALEPT [Suspect]
     Active Substance: METRELEPTIN
     Indication: LIPODYSTROPHY ACQUIRED
     Dosage: 3.75 MG, EVERY 12 HOURS
     Route: 058
     Dates: start: 2015

REACTIONS (8)
  - Splenomegaly [Unknown]
  - Red blood cell count decreased [Unknown]
  - Headache [Unknown]
  - Weight increased [Unknown]
  - Abdominal pain [Unknown]
  - Ascites [Unknown]
  - Diabetes mellitus [Unknown]
  - Ovarian disorder [Unknown]

NARRATIVE: CASE EVENT DATE: 201802
